FAERS Safety Report 10650970 (Version 2)
Quarter: 2014Q4

REPORT INFORMATION
  Report Type: Spontaneous
  Country: US (occurrence: US)
  Receive Date: 20141215
  Receipt Date: 20141215
  Transmission Date: 20150529
  Serious: No
  Sender: FDA-Public Use
  Company Number: US-THROMBOGENICS INC-SPO-2014-0038

PATIENT
  Age: 67 Year
  Sex: Male

DRUGS (2)
  1. JETREA [Suspect]
     Active Substance: OCRIPLASMIN
     Indication: MACULAR HOLE
  2. JETREA [Suspect]
     Active Substance: OCRIPLASMIN
     Indication: VITREOUS ADHESIONS
     Dosage: 0.125 MG, ONE TIME DOSE
     Route: 031
     Dates: start: 2013, end: 2013

REACTIONS (3)
  - Retinal injury [Recovered/Resolved]
  - Drug ineffective for unapproved indication [Unknown]
  - Visual acuity reduced transiently [Recovered/Resolved]
